FAERS Safety Report 17238558 (Version 1)
Quarter: 2020Q1

REPORT INFORMATION
  Report Type: Spontaneous
  Country: US (occurrence: US)
  Receive Date: 20200106
  Receipt Date: 20200106
  Transmission Date: 20200409
  Serious: Yes (Other)
  Sender: FDA-Public Use
  Company Number: US-SA-2020SA001237

PATIENT
  Age: 70 Year
  Sex: Male

DRUGS (12)
  1. JAKAFI [Interacting]
     Active Substance: RUXOLITINIB
     Indication: POLYCYTHAEMIA VERA
     Dosage: 5 MG, BID
     Route: 048
     Dates: start: 20180307
  2. ASPIRIN [ACETYLSALICYLIC ACID] [Concomitant]
     Active Substance: ASPIRIN
  3. TRAMADOL. [Concomitant]
     Active Substance: TRAMADOL
  4. LOVENOX [Suspect]
     Active Substance: ENOXAPARIN SODIUM
     Dosage: UNK UNK, UNK
     Route: 065
  5. JAKAFI [Interacting]
     Active Substance: RUXOLITINIB
     Indication: MYELOFIBROSIS
     Dosage: 5 MG, BID
     Route: 048
     Dates: start: 20180302
  6. JAKAFI [Interacting]
     Active Substance: RUXOLITINIB
     Dosage: 10 MG, BID
     Route: 048
     Dates: start: 2019
  7. ALLOPURINOL. [Interacting]
     Active Substance: ALLOPURINOL
     Dosage: UNK UNK, UNK
     Route: 065
  8. THALOMID [Suspect]
     Active Substance: THALIDOMIDE
     Dosage: UNK UNK, UNK
  9. FOLIC ACID. [Concomitant]
     Active Substance: FOLIC ACID
  10. JAKAFI [Interacting]
     Active Substance: RUXOLITINIB
     Dosage: 5 MG, BID
     Route: 048
     Dates: start: 2019
  11. JAKAFI [Interacting]
     Active Substance: RUXOLITINIB
     Dosage: 5 MG, BID
     Route: 048
     Dates: start: 20190629, end: 20191128
  12. VITAMINS NOS [Concomitant]
     Active Substance: VITAMINS

REACTIONS (12)
  - Headache [Unknown]
  - Product dose omission [Unknown]
  - Nausea [Unknown]
  - Contusion [Unknown]
  - Thrombosis [Unknown]
  - Weight increased [Unknown]
  - Fatigue [Unknown]
  - Drug interaction [Unknown]
  - Platelet count decreased [Unknown]
  - Blister [Recovered/Resolved]
  - Skin disorder [Unknown]
  - Platelet disorder [Unknown]

NARRATIVE: CASE EVENT DATE: 20180309
